FAERS Safety Report 7480402-X (Version None)
Quarter: 2011Q2

REPORT INFORMATION
  Report Type: 
  Country: None (occurrence: None)
  Receive Date: 20110516
  Receipt Date: 20110502
  Transmission Date: 20111010
  Serious: Yes (Hospitalization, Other)
  Sender: FDA-Public Use
  Company Number: PHHY2011FR39298

PATIENT
  Sex: Female

DRUGS (7)
  1. KALEORID [Concomitant]
  2. CARDENSIEL [Concomitant]
  3. OGAST [Concomitant]
  4. RAMIPRIL [Concomitant]
  5. ACETAMINOPHEN AND TRAMADOL HCL [Concomitant]
  6. LASIX [Concomitant]
  7. TEGRETOL [Suspect]
     Indication: TRIGEMINAL NEURALGIA
     Dosage: 200 MG, BID
     Dates: start: 20100914

REACTIONS (18)
  - SPEECH DISORDER [None]
  - NYSTAGMUS [None]
  - ANTICONVULSANT DRUG LEVEL INCREASED [None]
  - DYSARTHRIA [None]
  - ATRIOVENTRICULAR BLOCK [None]
  - MALAISE [None]
  - NAUSEA [None]
  - GAIT DISTURBANCE [None]
  - CEREBRAL MICROANGIOPATHY [None]
  - BUNDLE BRANCH BLOCK [None]
  - VIITH NERVE PARALYSIS [None]
  - COGNITIVE DISORDER [None]
  - MEMORY IMPAIRMENT [None]
  - VERTIGO [None]
  - AMAUROSIS FUGAX [None]
  - ABNORMAL BEHAVIOUR [None]
  - VISUAL ACUITY REDUCED [None]
  - VISION BLURRED [None]
